FAERS Safety Report 15168913 (Version 1)
Quarter: 2018Q3

REPORT INFORMATION
  Report Type: Spontaneous
  Country: AU (occurrence: AU)
  Receive Date: 20180720
  Receipt Date: 20180720
  Transmission Date: 20181010
  Serious: Yes (Other)
  Sender: FDA-Public Use
  Company Number: AU-ALK-ABELLO A/S-2018AA002242

PATIENT

DRUGS (1)
  1. ACARIZAX [Suspect]
     Active Substance: DERMATOPHAGOIDES FARINAE\DERMATOPHAGOIDES PTERONYSSINUS
     Indication: IMMUNE TOLERANCE INDUCTION
     Dosage: 12 SQ?HDM, QD
     Route: 060
     Dates: start: 20180628, end: 20180710

REACTIONS (8)
  - Dysphagia [Recovering/Resolving]
  - Mouth swelling [Recovered/Resolved]
  - Nausea [Recovering/Resolving]
  - Oral pruritus [Recovered/Resolved]
  - Condition aggravated [Recovering/Resolving]
  - Rhinitis allergic [Recovering/Resolving]
  - Vomiting [Recovering/Resolving]
  - Lip swelling [Recovered/Resolved]

NARRATIVE: CASE EVENT DATE: 201806
